FAERS Safety Report 21932300 (Version 3)
Quarter: 2023Q1

REPORT INFORMATION
  Report Type: Spontaneous
  Country: US (occurrence: US)
  Receive Date: 20230131
  Receipt Date: 20230322
  Transmission Date: 20230417
  Serious: Yes (Other)
  Sender: FDA-Public Use
  Company Number: US-PFIZER INC-PV202200125726

PATIENT
  Age: 54 Year
  Sex: Female

DRUGS (2)
  1. IBRANCE [Suspect]
     Active Substance: PALBOCICLIB
     Indication: Pseudomyxoma peritonei
     Dosage: UNK
  2. IBRANCE [Suspect]
     Active Substance: PALBOCICLIB
     Indication: Adenocarcinoma
     Dosage: 100 MG

REACTIONS (8)
  - Intestinal obstruction [Unknown]
  - Off label use [Unknown]
  - Abdominal pain [Unknown]
  - Fatigue [Unknown]
  - Nasal dryness [Unknown]
  - Rash [Unknown]
  - Hypoaesthesia [Unknown]
  - Yellow skin [Unknown]
